FAERS Safety Report 10161224 (Version 1)
Quarter: 2014Q2

REPORT INFORMATION
  Report Type: Report from Study
  Country: BR (occurrence: BR)
  Receive Date: 20140508
  Receipt Date: 20140508
  Transmission Date: 20141212
  Serious: Yes (Other)
  Sender: FDA-Public Use
  Company Number: PHHY2014BR056112

PATIENT
  Age: 81 Year
  Sex: Female
  Weight: 51 kg

DRUGS (12)
  1. EXELON PATCH [Suspect]
     Indication: MEMORY IMPAIRMENT
     Dosage: 4.6 MG (9 MG/5 CM2), DAILY
     Route: 062
  2. ENALAPRIL [Concomitant]
     Indication: BLOOD PRESSURE ABNORMAL
     Dosage: 1 DF, DAILY
  3. ZIPROL [Concomitant]
     Indication: GASTRIC DISORDER
     Dosage: 1 DF, DAILY
  4. LEVOTHYROXINE SODIUM [Concomitant]
     Indication: HYPOTHYROIDISM
     Dosage: 0.5 DF, DAILY
  5. PINAVERIUM [Concomitant]
     Indication: GASTRIC DISORDER
     Dosage: 1 DF, DAILY
  6. DOMPERIDONE [Concomitant]
     Indication: GASTRIC DISORDER
     Dosage: 2 DF, DAILY
  7. VASTAREL [Concomitant]
     Indication: CARDIOVASCULAR DISORDER
     Dosage: 2 DF, DAILY
  8. LIPLESS [Concomitant]
     Indication: BLOOD TRIGLYCERIDES ABNORMAL
     Dosage: 1 DF, DAILY
  9. FRONTAL [Concomitant]
     Indication: SLEEP DISORDER
     Dosage: 1 DF, DAILY
  10. INSULIN NPH//INSULIN ISOPHANE BOVINE [Concomitant]
     Indication: DIABETES MELLITUS
     Dosage: 30 U, 20 U IN THE MORNING AND 10 U AT NIGHT
  11. ONBREZ [Concomitant]
     Indication: EMPHYSEMA
     Dosage: UNK UKN, QD
  12. ASSERT [Concomitant]
     Indication: ANXIETY
     Dosage: 0.5 DF, DAILY

REACTIONS (9)
  - Myocardial ischaemia [Unknown]
  - Feeling abnormal [Unknown]
  - Dysphonia [Unknown]
  - Blood calcium decreased [Unknown]
  - Balance disorder [Unknown]
  - Tremor [Unknown]
  - Malaise [Unknown]
  - Anxiety [Unknown]
  - Head discomfort [Unknown]
